FAERS Safety Report 4942993-X (Version None)
Quarter: 2006Q1

REPORT INFORMATION
  Report Type: 
  Country: None (occurrence: None)
  Receive Date: 20060314
  Receipt Date: 20060309
  Transmission Date: 20060701
  Serious: Yes (Death, Life-Threatening)
  Sender: FDA-Public Use
  Company Number: AR-GLAXOSMITHKLINE-A0597224A

PATIENT
  Age: 67 Year
  Sex: Female

DRUGS (2)
  1. FONDAPARINUX [Suspect]
     Dosage: 2.5MG PER DAY
     Route: 058
     Dates: start: 20050629, end: 20050630
  2. ASPIRIN [Concomitant]

REACTIONS (6)
  - BRADYCARDIA [None]
  - CARDIOGENIC SHOCK [None]
  - CORONARY ARTERY THROMBOSIS [None]
  - NAUSEA [None]
  - RESPIRATORY ARREST [None]
  - VOMITING [None]
